FAERS Safety Report 15614582 (Version 1)
Quarter: 2018Q4

REPORT INFORMATION
  Report Type: Other
  Country: ES (occurrence: ES)
  Receive Date: 20181113
  Receipt Date: 20181113
  Transmission Date: 20190205
  Serious: Yes (Other)
  Sender: FDA-Public Use
  Company Number: ES-CELLTRION INC.-2018ES023659

PATIENT

DRUGS (1)
  1. INFLIXIMAB (UNKNOWN) [Suspect]
     Active Substance: INFLIXIMAB
     Indication: CROHN^S DISEASE
     Dosage: (DOSAGE FORM: LYOPHILIZED POWDER)
     Route: 042

REACTIONS (4)
  - Female genital tract fistula [Unknown]
  - Drug ineffective [Unknown]
  - Crohn^s disease [Recovering/Resolving]
  - Drug intolerance [Unknown]
